FAERS Safety Report 23182612 (Version 1)
Quarter: 2023Q4

REPORT INFORMATION
  Report Type: Spontaneous
  Country: US (occurrence: US)
  Receive Date: 20231114
  Receipt Date: 20231114
  Transmission Date: 20240110
  Serious: Yes (Other)
  Sender: FDA-Public Use
  Company Number: US-PFIZER INC-PV202300184508

PATIENT

DRUGS (27)
  1. LINEZOLID [Suspect]
     Active Substance: LINEZOLID
     Indication: Atypical mycobacterial infection
     Dosage: UNK
     Route: 048
     Dates: start: 202201, end: 202202
  2. LINEZOLID [Suspect]
     Active Substance: LINEZOLID
     Indication: Skin bacterial infection
  3. LINEZOLID [Suspect]
     Active Substance: LINEZOLID
     Indication: Mycobacterium fortuitum infection
  4. DOXYCYCLINE HYCLATE [Suspect]
     Active Substance: DOXYCYCLINE HYCLATE
     Indication: Atypical mycobacterial infection
     Dosage: UNK
     Route: 048
  5. DOXYCYCLINE HYCLATE [Suspect]
     Active Substance: DOXYCYCLINE HYCLATE
     Indication: Skin bacterial infection
  6. DOXYCYCLINE HYCLATE [Suspect]
     Active Substance: DOXYCYCLINE HYCLATE
     Indication: Mycobacterium fortuitum infection
  7. CLINDAMYCIN [Suspect]
     Active Substance: CLINDAMYCIN
     Indication: Atypical mycobacterial infection
     Dosage: UNK
     Route: 048
  8. CLINDAMYCIN [Suspect]
     Active Substance: CLINDAMYCIN
     Indication: Skin bacterial infection
  9. CLINDAMYCIN [Suspect]
     Active Substance: CLINDAMYCIN
     Indication: Mycobacterium fortuitum infection
  10. NUZYRA [Suspect]
     Active Substance: OMADACYCLINE
     Indication: Atypical mycobacterial infection
     Dosage: 150 MG
     Route: 048
  11. NUZYRA [Suspect]
     Active Substance: OMADACYCLINE
     Indication: Skin bacterial infection
     Dosage: UNK
     Route: 048
  12. NUZYRA [Suspect]
     Active Substance: OMADACYCLINE
     Indication: Mycobacterium fortuitum infection
  13. IMIPENEM [Suspect]
     Active Substance: IMIPENEM
     Indication: Skin bacterial infection
     Dosage: UNK
     Route: 017
     Dates: start: 202201
  14. IMIPENEM [Suspect]
     Active Substance: IMIPENEM
     Indication: Atypical mycobacterial infection
  15. IMIPENEM [Suspect]
     Active Substance: IMIPENEM
     Indication: Mycobacterium fortuitum infection
  16. LEVAQUIN [Suspect]
     Active Substance: LEVOFLOXACIN
     Indication: Atypical mycobacterial infection
     Dosage: UNK
     Route: 048
  17. LEVAQUIN [Suspect]
     Active Substance: LEVOFLOXACIN
     Indication: Skin bacterial infection
  18. LEVAQUIN [Suspect]
     Active Substance: LEVOFLOXACIN
     Indication: Mycobacterium fortuitum infection
  19. MOXIFLOXACIN [Suspect]
     Active Substance: MOXIFLOXACIN
     Indication: Atypical mycobacterial infection
     Dosage: UNK
     Route: 048
  20. MOXIFLOXACIN [Suspect]
     Active Substance: MOXIFLOXACIN
     Indication: Skin bacterial infection
  21. MOXIFLOXACIN [Suspect]
     Active Substance: MOXIFLOXACIN
     Indication: Mycobacterium fortuitum infection
  22. AUGMENTIN [Suspect]
     Active Substance: AMOXICILLIN\CLAVULANATE POTASSIUM
     Indication: Atypical mycobacterial infection
     Dosage: UNK
     Route: 048
  23. AUGMENTIN [Suspect]
     Active Substance: AMOXICILLIN\CLAVULANATE POTASSIUM
     Indication: Skin bacterial infection
  24. AUGMENTIN [Suspect]
     Active Substance: AMOXICILLIN\CLAVULANATE POTASSIUM
     Indication: Mycobacterium fortuitum infection
  25. BACTRIM [Suspect]
     Active Substance: SULFAMETHOXAZOLE\TRIMETHOPRIM
     Indication: Atypical mycobacterial infection
     Dosage: UNK
     Route: 048
  26. BACTRIM [Suspect]
     Active Substance: SULFAMETHOXAZOLE\TRIMETHOPRIM
     Indication: Skin bacterial infection
  27. BACTRIM [Suspect]
     Active Substance: SULFAMETHOXAZOLE\TRIMETHOPRIM
     Indication: Mycobacterium fortuitum infection

REACTIONS (13)
  - Lymphangitis [Unknown]
  - Cutaneous sporotrichosis [Unknown]
  - Disease progression [Unknown]
  - Hypoaesthesia [Unknown]
  - Skin mass [Unknown]
  - Dizziness [Unknown]
  - Dry mouth [Unknown]
  - Poor quality sleep [Recovered/Resolved]
  - Nausea [Unknown]
  - Hepatic enzyme increased [Recovered/Resolved]
  - Diarrhoea [Unknown]
  - Off label use [Unknown]
  - Drug ineffective for unapproved indication [Unknown]
